FAERS Safety Report 13020795 (Version 3)
Quarter: 2017Q1

REPORT INFORMATION
  Report Type: Spontaneous
  Country: GB (occurrence: GB)
  Receive Date: 20161212
  Receipt Date: 20170314
  Transmission Date: 20170428
  Serious: Yes (Hospitalization)
  Sender: FDA-Public Use
  Company Number: GB-MYLANLABS-2016M1054026

PATIENT

DRUGS (1)
  1. CLOZARIL [Suspect]
     Active Substance: CLOZAPINE
     Indication: SCHIZOPHRENIA
     Dosage: UNK
     Route: 048
     Dates: start: 20071012, end: 201703

REACTIONS (10)
  - Schizophrenia [Unknown]
  - Liver sarcoidosis [Recovering/Resolving]
  - Off label use [Unknown]
  - Condition aggravated [Recovering/Resolving]
  - Neutrophil count decreased [Unknown]
  - Malaise [Unknown]
  - Type 2 diabetes mellitus [Unknown]
  - White blood cell count decreased [Unknown]
  - Overweight [Unknown]
  - Torsade de pointes [Unknown]

NARRATIVE: CASE EVENT DATE: 2016
